FAERS Safety Report 22085445 (Version 2)
Quarter: 2023Q1

REPORT INFORMATION
  Report Type: Spontaneous
  Country: CH (occurrence: CH)
  Receive Date: 20230310
  Receipt Date: 20230321
  Transmission Date: 20230418
  Serious: Yes (Other)
  Sender: FDA-Public Use
  Company Number: CH-MYLANLABS-2023M1011586

PATIENT
  Sex: Female

DRUGS (4)
  1. TOBI PODHALER [Suspect]
     Active Substance: TOBRAMYCIN
     Indication: Bronchiectasis
     Dosage: 4 CAPS 2 TIMES PER DAY FOR INHALATION FOR 28 DAYS
     Dates: start: 20230212
  2. TOBI PODHALER [Suspect]
     Active Substance: TOBRAMYCIN
     Indication: Bacterial disease carrier
  3. COLISTIMETHATE SODIUM [Concomitant]
     Active Substance: COLISTIMETHATE SODIUM
     Indication: Bronchiectasis
     Dosage: UNK
     Route: 065
  4. COLISTIMETHATE SODIUM [Concomitant]
     Active Substance: COLISTIMETHATE SODIUM
     Indication: Bacterial disease carrier

REACTIONS (2)
  - Hypoxia [Recovered/Resolved]
  - Off label use [Unknown]

NARRATIVE: CASE EVENT DATE: 20230301
